FAERS Safety Report 5086789-X (Version None)
Quarter: 2006Q3

REPORT INFORMATION
  Report Type: 
  Country: None (occurrence: None)
  Receive Date: 20060823
  Receipt Date: 20060817
  Transmission Date: 20061208
  Serious: Yes (Other)
  Sender: FDA-Public Use
  Company Number: 2006PK01744

PATIENT
  Age: 55 Year
  Sex: Male
  Weight: 60.2 kg

DRUGS (6)
  1. SEROQUEL [Suspect]
     Indication: PSYCHOTIC DISORDER
     Dosage: LESS THAN 1200 MG/DAY
     Route: 048
     Dates: start: 20060703, end: 20060712
  2. SEROQUEL [Interacting]
     Route: 048
     Dates: start: 20060713, end: 20060714
  3. SEROQUEL [Interacting]
     Dosage: REDUCED DAILY DOSE
     Route: 048
     Dates: start: 20060715
  4. DEPAKENE [Interacting]
     Indication: GRAND MAL CONVULSION
     Route: 048
     Dates: start: 19900101
  5. ABILIFY [Concomitant]
     Indication: SCHIZOPHRENIA
     Route: 048
     Dates: start: 20060714
  6. ENTUMIN [Concomitant]
     Indication: SCHIZOPHRENIA
     Route: 048
     Dates: start: 20060503

REACTIONS (2)
  - DRUG INTERACTION [None]
  - HYPOTENSION [None]
